FAERS Safety Report 9228409 (Version 2)
Quarter: 2013Q2

REPORT INFORMATION
  Report Type: Spontaneous
  Country: US (occurrence: US)
  Receive Date: 20130412
  Receipt Date: 20130618
  Transmission Date: 20140414
  Serious: No
  Sender: FDA-Public Use
  Company Number: US-GLAXOSMITHKLINE-A1019457A

PATIENT
  Age: 16 Year
  Sex: Female

DRUGS (3)
  1. ADVAIR [Suspect]
     Indication: ASTHMA
     Route: 055
  2. VENTOLIN [Concomitant]
  3. SINGULAIR [Concomitant]

REACTIONS (3)
  - Bronchospasm paradoxical [Unknown]
  - Throat tightness [Unknown]
  - Aphasia [Unknown]
